FAERS Safety Report 19994817 (Version 3)
Quarter: 2021Q4

REPORT INFORMATION
  Report Type: Spontaneous
  Country: DE (occurrence: DE)
  Receive Date: 20211026
  Receipt Date: 20211206
  Transmission Date: 20220303
  Serious: Yes (Death, Hospitalization, Other)
  Sender: FDA-Public Use
  Company Number: DE-DCGMA-21188374

PATIENT
  Age: 85 Year
  Sex: Male
  Weight: 60 kg

DRUGS (9)
  1. METFORMIN [Suspect]
     Active Substance: METFORMIN HYDROCHLORIDE
     Indication: Type 2 diabetes mellitus
     Dosage: DAILY DOSE: 2000 MG MILLGRAM(S) EVERY DAYS 2 SEPARATED DOSES
     Route: 048
     Dates: start: 20160120
  2. HYDROCHLOROTHIAZIDE\RAMIPRIL [Suspect]
     Active Substance: HYDROCHLOROTHIAZIDE\RAMIPRIL
     Indication: Hypertension
     Dosage: 0.5 DOSAGE FORM, QD (1DF CONTAINS 5 MG RAMIPRIL AND 12.5 MG HYDROCHLOROTHIAZID , UNIT DOSE : 0.5 DF)
     Route: 048
     Dates: start: 20160222
  3. VITAMIN B12                        /00056201/ [Concomitant]
     Indication: Vitamin B12 deficiency
     Dosage: DAILY DOSE: 1 MG MILLGRAM(S) EVERY MONTHS
     Route: 058
     Dates: start: 20160120
  4. SIMVASTATIN [Concomitant]
     Active Substance: SIMVASTATIN
     Indication: Coronary artery disease
     Dosage: DAILY DOSE: 20 MG MILLGRAM(S) EVERY DAYS
     Route: 048
     Dates: start: 20160120
  5. DIGITOXIN [Concomitant]
     Active Substance: DIGITOXIN
     Indication: Hypertension
     Dosage: DAILY DOSE: 0.07 MG MILLGRAM(S) EVERY DAYS
     Route: 048
     Dates: start: 20160120
  6. METOPROLOL [Concomitant]
     Active Substance: METOPROLOL
     Indication: Atrial fibrillation
     Dosage: DAILY DOSE: 190 MG MILLGRAM(S) EVERY DAYS 2 SEPARATED DOSES
     Route: 048
     Dates: start: 20160120
  7. NITRENDIPINE [Concomitant]
     Active Substance: NITRENDIPINE
     Indication: Hypertension
     Dosage: DAILY DOSE: 20 MG MILLGRAM(S) EVERY DAYS
     Route: 048
     Dates: start: 20160120
  8. APIXABAN [Concomitant]
     Active Substance: APIXABAN
     Indication: Hypertension
     Dosage: DAILY DOSE: 5 MG MILLGRAM(S) EVERY DAYS 2 SEPARATED DOSES
     Route: 048
  9. RAMIPRIL [Concomitant]
     Active Substance: RAMIPRIL
     Indication: Hypertension
     Dosage: 2.5 MILLIGRAM, QD (2.5 MILLIGRAM DAILY)
     Route: 048
     Dates: start: 20160222

REACTIONS (11)
  - Lactic acidosis [Fatal]
  - Acute kidney injury [Fatal]
  - Epilepsy [Fatal]
  - Hypokalaemia [Fatal]
  - Haematoma [Fatal]
  - Tongue biting [Fatal]
  - Fall [Fatal]
  - Dehydration [Fatal]
  - Tremor [Fatal]
  - Hyponatraemia [Fatal]
  - Confusional state [Fatal]

NARRATIVE: CASE EVENT DATE: 20210219
